FAERS Safety Report 25650399 (Version 1)
Quarter: 2025Q3

REPORT INFORMATION
  Report Type: Spontaneous
  Country: MX (occurrence: MX)
  Receive Date: 20250806
  Receipt Date: 20250806
  Transmission Date: 20251021
  Serious: Yes (Life-Threatening, Other)
  Sender: PFIZER
  Company Number: MX-PFIZER INC-202500156667

PATIENT
  Sex: Male
  Weight: 3.57 kg

DRUGS (1)
  1. SIROLIMUS [Suspect]
     Active Substance: SIROLIMUS
     Indication: Rhabdomyoma
     Route: 048

REACTIONS (3)
  - Necrotising enterocolitis neonatal [Unknown]
  - Off label use [Unknown]
  - Off label use [Unknown]
